FAERS Safety Report 16789222 (Version 2)
Quarter: 2019Q3

REPORT INFORMATION
  Report Type: Spontaneous
  Country: FR (occurrence: FR)
  Receive Date: 20190910
  Receipt Date: 20190921
  Transmission Date: 20191005
  Serious: Yes (Hospitalization)
  Sender: FDA-Public Use
  Company Number: FR-AUROBINDO-AUR-APL-2019-058286

PATIENT
  Age: 69 Year
  Sex: Male
  Weight: 87 kg

DRUGS (5)
  1. DALACIN [Suspect]
     Active Substance: CLINDAMYCIN
     Indication: PLEURAL INFECTION BACTERIAL
     Dosage: 6 DOSAGE FORM, EVERY HOUR
     Route: 048
     Dates: start: 20190804, end: 20190814
  2. GABAPENTINE ARROW GENERIQUES CAPSULES 100MG [Suspect]
     Active Substance: GABAPENTIN
     Indication: PRODUCT USED FOR UNKNOWN INDICATION
     Dosage: 4 DOSAGE FORM, ONCE A DAY
     Route: 048
     Dates: start: 20190726, end: 20190814
  3. SPASFON (PHLOROGLUCINOL\TRIMETHYLPHLOROGLUCINOL) [Suspect]
     Active Substance: PHLOROGLUCINOL\1,3,5-TRIMETHOXYBENZENE
     Indication: GASTROINTESTINAL PAIN
     Dosage: 3 DOSAGE FORM, ONCE A DAY
     Route: 048
     Dates: start: 20190728, end: 20190814
  4. MIDAZOLAM [Suspect]
     Active Substance: MIDAZOLAM HYDROCHLORIDE
     Indication: SEDATION
     Dosage: 9 MILLIGRAM, ONCE A DAY
     Route: 042
     Dates: start: 20190806, end: 20190816
  5. DALACIN [Suspect]
     Active Substance: CLINDAMYCIN
     Indication: PLEURAL INFECTION BACTERIAL
     Dosage: 6 DOSAGE FORM
     Route: 042
     Dates: start: 20190731, end: 20190803

REACTIONS (2)
  - Face oedema [Recovering/Resolving]
  - Rash maculo-papular [Recovering/Resolving]

NARRATIVE: CASE EVENT DATE: 20190813
